FAERS Safety Report 20607357 (Version 1)
Quarter: 2022Q1

REPORT INFORMATION
  Report Type: Spontaneous
  Country: PL (occurrence: None)
  Receive Date: 20220317
  Receipt Date: 20220317
  Transmission Date: 20220423
  Serious: Yes (Other)
  Sender: FDA-Public Use
  Company Number: 2022A105376

PATIENT
  Age: 65 Year
  Sex: Female

DRUGS (6)
  1. ESOMEPRAZOLE MAGNESIUM [Suspect]
     Active Substance: ESOMEPRAZOLE MAGNESIUM
     Indication: Product used for unknown indication
     Route: 065
     Dates: start: 20220218, end: 20220220
  2. DICLOFENAC SODIUM [Suspect]
     Active Substance: DICLOFENAC SODIUM
     Indication: Product used for unknown indication
     Route: 065
     Dates: start: 20220218, end: 20220220
  3. ETORICOXIB [Suspect]
     Active Substance: ETORICOXIB
     Indication: Product used for unknown indication
     Route: 065
     Dates: start: 20220219, end: 20220219
  4. GELATIN [Suspect]
     Active Substance: GELATIN
     Indication: Product used for unknown indication
     Route: 065
     Dates: start: 20220218, end: 20220220
  5. RUPALLER [Concomitant]
     Indication: Product used for unknown indication
  6. CHOLECALCIFEROL [Concomitant]
     Active Substance: CHOLECALCIFEROL
     Indication: Osteopenia

REACTIONS (7)
  - Localised oedema [Recovering/Resolving]
  - Lip swelling [Recovering/Resolving]
  - Diarrhoea [Recovering/Resolving]
  - Pruritus [Recovering/Resolving]
  - Hypersensitivity [Recovering/Resolving]
  - Urticaria [Recovering/Resolving]
  - Abdominal pain [Recovering/Resolving]

NARRATIVE: CASE EVENT DATE: 20220219
